FAERS Safety Report 5001519-5 (Version None)
Quarter: 2006Q2

REPORT INFORMATION
  Report Type: 
  Country: None (occurrence: None)
  Receive Date: 20060512
  Receipt Date: 20050829
  Transmission Date: 20061013
  Serious: Yes (Hospitalization, Other)
  Sender: FDA-Public Use
  Company Number: US-MERCK-0508USA04739

PATIENT
  Age: 57 Year
  Sex: Female
  Weight: 96 kg

DRUGS (3)
  1. VIOXX [Suspect]
     Indication: ARTHRITIS
     Route: 048
     Dates: start: 19990101, end: 20010101
  2. VIOXX [Suspect]
     Route: 048
     Dates: start: 19990101, end: 20010101
  3. TYLENOL (CAPLET) [Concomitant]
     Route: 065

REACTIONS (9)
  - BREAST CANCER [None]
  - CEREBROVASCULAR ACCIDENT [None]
  - CHEST PAIN [None]
  - DYSPNOEA [None]
  - HOT FLUSH [None]
  - HYPERTENSION [None]
  - OSTEOARTHRITIS [None]
  - PNEUMONIA [None]
  - SUBMANDIBULAR MASS [None]
